FAERS Safety Report 10790631 (Version 1)
Quarter: 2015Q1

REPORT INFORMATION
  Report Type: Spontaneous
  Country: US (occurrence: US)
  Receive Date: 20150212
  Receipt Date: 20150212
  Transmission Date: 20150721
  Serious: No
  Sender: FDA-Public Use
  Company Number: US-GLAXOSMITHKLINE-US2014035460

PATIENT
  Age: 77 Year
  Sex: Male

DRUGS (7)
  1. LASIX [Concomitant]
     Active Substance: FUROSEMIDE
     Dosage: UNK, U
     Dates: end: 201410
  2. VOTRIENT [Suspect]
     Active Substance: PAZOPANIB HYDROCHLORIDE
     Indication: RENAL CELL CARCINOMA
     Dosage: 800 MG, 1D
     Route: 048
     Dates: start: 20140610
  3. ALTACE [Concomitant]
     Active Substance: RAMIPRIL
  4. CARVEDILOL. [Suspect]
     Active Substance: CARVEDILOL
     Dosage: HALF OF PREVIOUS DOSE
     Dates: start: 201406
  5. LASIX [Concomitant]
     Active Substance: FUROSEMIDE
     Dosage: HALF OF PREVIOUS DOSE
     Dates: start: 201410
  6. CARVEDILOL. [Suspect]
     Active Substance: CARVEDILOL
     Indication: PRODUCT USED FOR UNKNOWN INDICATION
     Dosage: UNK UNK, U
     Dates: end: 201406
  7. CALCITRIOL. [Concomitant]
     Active Substance: CALCITRIOL

REACTIONS (1)
  - Muscle spasms [Recovered/Resolved]
